FAERS Safety Report 9258165 (Version 1)
Quarter: 2013Q1

REPORT INFORMATION
  Report Type: Spontaneous
  Country: US (occurrence: None)
  Receive Date: 20121212
  Receipt Date: 20121212
  Transmission Date: 20140127
  Serious: No
  Sender: FDA-Public Use
  Company Number: 1208USA008458

PATIENT
  Age: 60 Year
  Sex: Male

DRUGS (3)
  1. PEGINTRON [Suspect]
     Indication: HEPATITIS C
     Route: 058
     Dates: start: 20120818
  2. VICTRELIS [Suspect]
     Route: 048
  3. REBETOL [Suspect]
     Route: 048

REACTIONS (5)
  - Hyperhidrosis [None]
  - Injection site pain [None]
  - Chest pain [None]
  - Chills [None]
  - Abdominal pain lower [None]
